FAERS Safety Report 26037833 (Version 1)
Quarter: 2025Q4

REPORT INFORMATION
  Report Type: Spontaneous
  Country: US (occurrence: US)
  Receive Date: 20251112
  Receipt Date: 20251112
  Transmission Date: 20260118
  Serious: No
  Sender: BRACCO
  Company Number: US-BRACCO-2025US02759

PATIENT
  Age: 45 Year
  Sex: Male

DRUGS (6)
  1. LUMASON [Suspect]
     Active Substance: SULFUR HEXAFLUORIDE
     Indication: Echocardiogram
     Dosage: UNK UNK, SINGLE
     Route: 042
     Dates: start: 20250408, end: 20250408
  2. LUMASON [Suspect]
     Active Substance: SULFUR HEXAFLUORIDE
     Indication: Echocardiogram
     Dosage: UNK UNK, SINGLE
     Route: 042
     Dates: start: 20250408, end: 20250408
  3. LUMASON [Suspect]
     Active Substance: SULFUR HEXAFLUORIDE
     Indication: Echocardiogram
     Dosage: UNK UNK, SINGLE
     Route: 042
     Dates: start: 20250408, end: 20250408
  4. HYZAAR [Concomitant]
     Active Substance: HYDROCHLOROTHIAZIDE\LOSARTAN POTASSIUM
  5. LIPITOR [Concomitant]
     Active Substance: ATORVASTATIN CALCIUM
  6. SYNTHROID [Concomitant]
     Active Substance: LEVOTHYROXINE SODIUM

REACTIONS (4)
  - Chest pain [Recovered/Resolved]
  - Limb discomfort [Recovered/Resolved]
  - Ocular discomfort [Recovered/Resolved]
  - Dyspnoea [Recovered/Resolved]

NARRATIVE: CASE EVENT DATE: 20250408
